FAERS Safety Report 4523961-9 (Version None)
Quarter: 2004Q4

REPORT INFORMATION
  Report Type: 
  Country: None (occurrence: None)
  Receive Date: 20041209
  Receipt Date: 20041122
  Transmission Date: 20050328
  Serious: Yes (Hospitalization)
  Sender: FDA-Public Use
  Company Number: 9346

PATIENT
  Age: 57 Year
  Sex: Female

DRUGS (1)
  1. METHOTREXATE [Suspect]
     Indication: RHEUMATOID ARTHRITIS
     Dosage: 15 MG WEEKLY

REACTIONS (6)
  - ANIMAL SCRATCH [None]
  - ARTHRITIS INFECTIVE [None]
  - CELLULITIS [None]
  - CELLULITIS PASTEURELLA [None]
  - FAILURE OF IMPLANT [None]
  - LYMPHADENOPATHY [None]
